FAERS Safety Report 13814591 (Version 1)
Quarter: 2017Q3

REPORT INFORMATION
  Report Type: Spontaneous
  Country: US (occurrence: US)
  Receive Date: 20170731
  Receipt Date: 20170731
  Transmission Date: 20171127
  Serious: No
  Sender: FDA-Public Use
  Company Number: US-SUN PHARMACEUTICAL INDUSTRIES LTD-2017US-134784

PATIENT
  Age: 58 Year
  Sex: Female

DRUGS (1)
  1. TESTOSTERONE. [Suspect]
     Active Substance: TESTOSTERONE
     Indication: FATIGUE
     Dosage: 1 ML, FORTNIGHT
     Route: 065
     Dates: start: 201610

REACTIONS (4)
  - Drug ineffective [Unknown]
  - Drug administration error [Unknown]
  - Product deposit [Unknown]
  - Injection site pain [Recovering/Resolving]

NARRATIVE: CASE EVENT DATE: 201702
